FAERS Safety Report 25276532 (Version 1)
Quarter: 2025Q2

REPORT INFORMATION
  Report Type: Spontaneous
  Country: US (occurrence: US)
  Receive Date: 20250507
  Receipt Date: 20250507
  Transmission Date: 20250717
  Serious: Yes (Other)
  Sender: BIOCODEX
  Company Number: US-BIOCODEX2-2025000603

PATIENT
  Age: 9 Year
  Sex: Female

DRUGS (1)
  1. DIACOMIT [Suspect]
     Active Substance: STIRIPENTOL
     Indication: Product used for unknown indication
     Route: 065

REACTIONS (5)
  - Seizure [Unknown]
  - Agitation [Unknown]
  - Refusal of treatment by patient [Unknown]
  - School refusal [Unknown]
  - Crying [Unknown]
